FAERS Safety Report 10401818 (Version 1)
Quarter: 2014Q3

REPORT INFORMATION
  Report Type: Report from Study
  Country: US (occurrence: US)
  Receive Date: 20140822
  Receipt Date: 20140822
  Transmission Date: 20150326
  Serious: Yes (Other)
  Sender: FDA-Public Use
  Company Number: US-ROCHE-1450190

PATIENT
  Age: 27 Year
  Sex: Female

DRUGS (6)
  1. BEYAZ [Concomitant]
     Active Substance: DROSPIRENONE\ETHINYL ESTRADIOL\LEVOMEFOLATE CALCIUM
  2. DDAVP [Concomitant]
     Active Substance: DESMOPRESSIN ACETATE
     Route: 065
  3. DHEA [Concomitant]
     Active Substance: DEHYDROEPIANDROSTERONE-3-SULFATE SODIUM
  4. THYROXINE [Concomitant]
     Active Substance: LEVOTHYROXINE
     Route: 065
  5. SOMATROPIN [Suspect]
     Active Substance: SOMATROPIN
     Indication: GROWTH HORMONE DEFICIENCY
     Route: 058
     Dates: start: 2011
  6. HYDROCORTISONE. [Concomitant]
     Active Substance: HYDROCORTISONE
     Dosage: 5 PER DAY
     Route: 065

REACTIONS (5)
  - Insulin-like growth factor decreased [Unknown]
  - Fatigue [Unknown]
  - Cerebrovascular disorder [Unknown]
  - Menstruation irregular [Unknown]
  - Vomiting [Unknown]

NARRATIVE: CASE EVENT DATE: 201204
